FAERS Safety Report 4319470-2 (Version None)
Quarter: 2004Q1

REPORT INFORMATION
  Report Type: 
  Country: None (occurrence: None)
  Receive Date: 20040316
  Receipt Date: 20040310
  Transmission Date: 20041129
  Serious: Yes (Hospitalization)
  Sender: FDA-Public Use
  Company Number: A001-002-006006

PATIENT
  Age: 51 Year
  Sex: Male

DRUGS (5)
  1. ARICEPT [Suspect]
     Indication: DEMENTIA ALZHEIMER'S TYPE
     Dosage: 5 MG, 1 IN 1 D, ORAL
     Route: 048
     Dates: start: 20040227, end: 20040308
  2. VASOTEC [Concomitant]
  3. SYNTHROID [Concomitant]
  4. UNSPECIFIED SLEEPING PILL (UNSPECIFIED) [Concomitant]
  5. ALCOHOL (ETHANOL) [Concomitant]

REACTIONS (7)
  - ABDOMINAL PAIN UPPER [None]
  - ALCOHOL USE [None]
  - HALLUCINATION [None]
  - LOSS OF CONSCIOUSNESS [None]
  - MEMORY IMPAIRMENT [None]
  - PARANOIA [None]
  - SUICIDE ATTEMPT [None]
